FAERS Safety Report 9303124 (Version 2)
Quarter: 2014Q1

REPORT INFORMATION
  Report Type: Report from Study
  Country: MX (occurrence: MX)
  Receive Date: 20130522
  Receipt Date: 20140207
  Transmission Date: 20141002
  Serious: Yes (Death, Hospitalization)
  Sender: FDA-Public Use
  Company Number: PHHY2013MX050843

PATIENT
  Age: 75 Year
  Sex: Female

DRUGS (3)
  1. GALVUS [Suspect]
     Dosage: 1 DF, DAILY
  2. EXELON PATCH [Suspect]
     Indication: DEMENTIA ALZHEIMER^S TYPE
     Dosage: 4.6 MG (PATCH 5 CM2), DAILY
     Route: 062
     Dates: start: 201109
  3. EXELON PATCH [Suspect]
     Dosage: 9.5 MG (PATCH 10 CM2), DAILY
     Route: 062
     Dates: end: 20130410

REACTIONS (1)
  - Appendicitis [Fatal]
